FAERS Safety Report 13526340 (Version 4)
Quarter: 2017Q4

REPORT INFORMATION
  Report Type: Report from Study
  Country: CA (occurrence: CA)
  Receive Date: 20170509
  Receipt Date: 20171025
  Transmission Date: 20180320
  Serious: Yes (Other)
  Sender: FDA-Public Use
  Company Number: CA-TAKEDA-2016TUS015288

PATIENT
  Age: 63 Year
  Sex: Female

DRUGS (8)
  1. VEDOLIZUMAB [Suspect]
     Active Substance: VEDOLIZUMAB
     Indication: CROHN^S DISEASE
     Dosage: 300 MG, UNK
     Route: 042
     Dates: start: 20160809
  2. PREMARIN [Concomitant]
     Active Substance: ESTROGENS, CONJUGATED
     Dosage: 0.625 MG, QD
  3. VITAMIN D [Concomitant]
     Active Substance: CHOLECALCIFEROL
     Dosage: UNK
  4. AMITRIPTYLINE [Concomitant]
     Active Substance: AMITRIPTYLINE
     Dosage: UNK, QD
  5. SALAZOPYRIN [Concomitant]
     Active Substance: SULFASALAZINE
     Dosage: UNK
     Dates: start: 20161227
  6. PANTOPRAZOLE [Concomitant]
     Active Substance: PANTOPRAZOLE
     Dosage: 40 MG, BID
  7. TEVA PREGABALIN [Concomitant]
     Active Substance: PREGABALIN
     Dosage: UNK, QD
  8. CALCIUM [Concomitant]
     Active Substance: CALCIUM
     Dosage: UNK, BID

REACTIONS (17)
  - Amnesia [Unknown]
  - Arthralgia [Unknown]
  - Headache [Not Recovered/Not Resolved]
  - Bronchitis [Recovered/Resolved]
  - Rectal prolapse repair [Not Recovered/Not Resolved]
  - Arthritis [Not Recovered/Not Resolved]
  - Muscular weakness [Unknown]
  - Mobility decreased [Unknown]
  - Migraine [Unknown]
  - Dry mouth [Not Recovered/Not Resolved]
  - Diarrhoea [Recovered/Resolved]
  - Decreased appetite [Unknown]
  - Asthenia [Unknown]
  - Abdominal pain [Recovered/Resolved]
  - Gingival erythema [Not Recovered/Not Resolved]
  - Hot flush [Unknown]
  - Dupuytren^s contracture [Not Recovered/Not Resolved]

NARRATIVE: CASE EVENT DATE: 2016
